FAERS Safety Report 8791241 (Version 1)
Quarter: 2012Q4

REPORT INFORMATION
  Report Type: Spontaneous
  Country: US (occurrence: None)
  Receive Date: 20120914
  Receipt Date: 20120914
  Transmission Date: 20130627
  Serious: Yes (Life-Threatening, Hospitalization, Disabling)
  Sender: FDA-Public Use
  Company Number: None

PATIENT
  Sex: Female
  Weight: 117.94 kg

DRUGS (2)
  1. PHENTERMINE [Suspect]
     Indication: WEIGHT LOSS DIET
     Dates: start: 199706, end: 200110
  2. WELLBUTRIN [Suspect]
     Indication: DEPRESSION
     Dates: start: 200012

REACTIONS (2)
  - Hallucinations, mixed [None]
  - Delusion [None]
